FAERS Safety Report 8616664-2 (Version None)
Quarter: 2012Q3

REPORT INFORMATION
  Report Type: 
  Country: None (occurrence: None)
  Receive Date: 20120823
  Receipt Date: 20120817
  Transmission Date: 20120928
  Serious: Yes (Hospitalization)
  Sender: FDA-Public Use
  Company Number: BE-009507513-1208BEL007797

PATIENT

DRUGS (3)
  1. VICTRELIS [Suspect]
     Indication: HEPATITIS C
     Dosage: 2400 MG, TID
     Dates: start: 20120417, end: 20120731
  2. REBETOL [Suspect]
     Indication: HEPATITIS C
     Dosage: 1000 MG, BID
     Dates: start: 20120319, end: 20120731
  3. PEG-INTRON [Suspect]
     Indication: HEPATITIS C
     Dosage: 100 MICROGRAM, QW
     Dates: start: 20120319, end: 20120731

REACTIONS (7)
  - PYREXIA [None]
  - ANAEMIA [None]
  - NASAL OBSTRUCTION [None]
  - FATIGUE [None]
  - STREPTOCOCCAL INFECTION [None]
  - OROPHARYNGEAL PAIN [None]
  - CONDITION AGGRAVATED [None]
